FAERS Safety Report 7730764-0 (Version None)
Quarter: 2011Q3

REPORT INFORMATION
  Report Type: 
  Country: None (occurrence: None)
  Receive Date: 20110906
  Receipt Date: 20110824
  Transmission Date: 20111222
  Serious: Yes (Other)
  Sender: FDA-Public Use
  Company Number: RO-VIIV HEALTHCARE LIMITED-B0744330A

PATIENT
  Age: 44 Year
  Sex: Male

DRUGS (7)
  1. ZIDOVUDINE [Suspect]
     Indication: HIV INFECTION
     Route: 065
  2. EFAVIRENZ [Suspect]
     Indication: HIV INFECTION
     Route: 065
  3. PYRAZINAMIDE [Concomitant]
  4. RIFAMPICIN [Concomitant]
  5. LAMIVUDINE [Suspect]
     Indication: HIV INFECTION
     Route: 065
  6. ETHAMBUTOL [Concomitant]
  7. ISONIAZID [Concomitant]

REACTIONS (8)
  - PYREXIA [None]
  - ABDOMINAL PAIN [None]
  - NIGHTMARE [None]
  - HEADACHE [None]
  - CD4 LYMPHOCYTES [None]
  - HALLUCINATION [None]
  - IMMUNE RECONSTITUTION SYNDROME [None]
  - DIZZINESS [None]
